FAERS Safety Report 15686418 (Version 1)
Quarter: 2018Q4

REPORT INFORMATION
  Report Type: Spontaneous
  Country: FI (occurrence: FI)
  Receive Date: 20181204
  Receipt Date: 20181204
  Transmission Date: 20190205
  Serious: Yes (Hospitalization)
  Sender: FDA-Public Use
  Company Number: FI-JNJFOC-20181136278

PATIENT
  Sex: Male

DRUGS (2)
  1. PROPRAL [Concomitant]
     Indication: ANXIETY
     Route: 065
  2. SERENASE (HALOPERIDOL) [Suspect]
     Active Substance: HALOPERIDOL
     Indication: RESTLESSNESS
     Route: 030

REACTIONS (3)
  - Gait disturbance [Unknown]
  - Asthenia [Unknown]
  - Petit mal epilepsy [Unknown]
